FAERS Safety Report 23021985 (Version 2)
Quarter: 2023Q4

REPORT INFORMATION
  Report Type: Other
  Country: US (occurrence: None)
  Receive Date: 20231003
  Receipt Date: 20231205
  Transmission Date: 20240110
  Serious: Yes (Hospitalization)
  Sender: FDA-Public Use
  Company Number: US-ROCHE-2905324

PATIENT
  Age: 51 Year
  Sex: Female

DRUGS (2)
  1. OCREVUS [Suspect]
     Active Substance: OCRELIZUMAB
     Indication: Relapsing multiple sclerosis
     Dosage: INFUSE 600 MG INTRAVENOUSLY EVERY 6 MONTH?DATE OF TREATMENT : 12/AUG/2021, 15/AUG/2022, 10/MAR/2023
     Route: 042
     Dates: start: 20180107
  2. BIOTIN [Concomitant]
     Active Substance: BIOTIN

REACTIONS (6)
  - Alopecia [Not Recovered/Not Resolved]
  - Weight increased [Not Recovered/Not Resolved]
  - Dry skin [Unknown]
  - Pigmentation disorder [Unknown]
  - Urinary tract infection [Recovering/Resolving]
  - Malaise [Unknown]

NARRATIVE: CASE EVENT DATE: 20230701
